FAERS Safety Report 19148375 (Version 2)
Quarter: 2021Q2

REPORT INFORMATION
  Report Type: Report from Study
  Country: FR (occurrence: FR)
  Receive Date: 20210417
  Receipt Date: 20210510
  Transmission Date: 20210717
  Serious: Yes (Life-Threatening, Hospitalization, Other)
  Sender: FDA-Public Use
  Company Number: FR-CELLTRION INC.-2020FR028730

PATIENT

DRUGS (6)
  1. INFLECTRA [Suspect]
     Active Substance: INFLIXIMAB-DYYB
     Dosage: 600 MG
     Dates: start: 20200103, end: 20200103
  2. IMUREL [AZATHIOPRINE] [Concomitant]
     Active Substance: AZATHIOPRINE
     Indication: INFLAMMATORY BOWEL DISEASE
     Dosage: UNK
     Route: 048
     Dates: start: 20111122
  3. DELURSAN [Concomitant]
     Active Substance: URSODIOL
     Indication: CHOLANGITIS SCLEROSING
     Dosage: UNK
     Route: 048
     Dates: start: 201206
  4. INFLECTRA [Suspect]
     Active Substance: INFLIXIMAB-DYYB
     Dosage: 600 MG
     Dates: start: 20200417, end: 20200717
  5. INFLECTRA [Suspect]
     Active Substance: INFLIXIMAB-DYYB
     Indication: CROHN^S DISEASE
     Dosage: 700 MG, EVERY 8 WEEKS
     Dates: start: 20190218
  6. MIKICORT [Concomitant]
     Active Substance: BUDESONIDE
     Indication: INFLAMMATORY BOWEL DISEASE
     Dosage: UNK
     Route: 048
     Dates: start: 20111122

REACTIONS (3)
  - Cholangitis [Recovered/Resolved]
  - Portal hypertension [Recovered/Resolved]
  - Malformation biliary [Recovered/Resolved]

NARRATIVE: CASE EVENT DATE: 20200717
